FAERS Safety Report 18811081 (Version 1)
Quarter: 2021Q1

REPORT INFORMATION
  Report Type: Report from Study
  Country: IT (occurrence: IT)
  Receive Date: 20210129
  Receipt Date: 20210129
  Transmission Date: 20210419
  Serious: Yes (Other)
  Sender: FDA-Public Use
  Company Number: IT-MYLANLABS-2019M1082437

PATIENT
  Age: 40 Year
  Sex: Female
  Weight: 85 kg

DRUGS (3)
  1. GLATIRAMER MYLAN [Suspect]
     Active Substance: GLATIRAMER
     Indication: RELAPSING MULTIPLE SCLEROSIS
     Dosage: 40 MICROGRAM, CYCLE
     Route: 058
     Dates: start: 20190301, end: 20190426
  2. GLATIRAMER MYLAN [Suspect]
     Active Substance: GLATIRAMER
     Dosage: 40 MILLIGRAM, Q2D
     Route: 058
     Dates: start: 20060101, end: 20200325
  3. ENALAPRIL [Concomitant]
     Active Substance: ENALAPRIL
     Indication: HYPERTENSION
     Dosage: 1 DOSAGE FORM
     Route: 048

REACTIONS (10)
  - Arthralgia [Recovering/Resolving]
  - Product substitution issue [Recovered/Resolved]
  - Dysentery [Recovering/Resolving]
  - Injection site reaction [Recovered/Resolved]
  - Asthenia [Recovering/Resolving]
  - Malaise [Recovered/Resolved]
  - Headache [Recovering/Resolving]
  - Myalgia [Recovering/Resolving]
  - Coronavirus infection [Recovering/Resolving]
  - Pyrexia [Recovering/Resolving]

NARRATIVE: CASE EVENT DATE: 20190301
